FAERS Safety Report 7615742-4 (Version None)
Quarter: 2011Q3

REPORT INFORMATION
  Report Type: 
  Country: None (occurrence: None)
  Receive Date: 20110715
  Receipt Date: 20110715
  Transmission Date: 20111222
  Serious: Yes (Hospitalization, Other)
  Sender: FDA-Public Use
  Company Number: None

PATIENT
  Sex: Female
  Weight: 63.5036 kg

DRUGS (1)
  1. CYMBALTA [Suspect]
     Indication: SCIATICA
     Dosage: 1 PER DAY PO
     Route: 048
     Dates: start: 20110704, end: 20110707

REACTIONS (6)
  - FALL [None]
  - DIZZINESS [None]
  - PAIN [None]
  - BALANCE DISORDER [None]
  - ABDOMINAL DISCOMFORT [None]
  - BLOOD SODIUM DECREASED [None]
